FAERS Safety Report 9690027 (Version 1)
Quarter: 2013Q4

REPORT INFORMATION
  Report Type: Spontaneous
  Country: DK (occurrence: DK)
  Receive Date: 20131115
  Receipt Date: 20131115
  Transmission Date: 20140711
  Serious: Yes (Hospitalization)
  Sender: FDA-Public Use
  Company Number: DK-ACCORD-020281

PATIENT
  Age: 84 Year
  Sex: Female

DRUGS (8)
  1. UNIKALK SENIOR [Concomitant]
  2. PANTOPRAZOLE [Concomitant]
  3. SPIRONOLACTONE [Concomitant]
  4. LOSARTAN [Concomitant]
  5. CITALOPRAM [Concomitant]
  6. HJERTEMAGNYL [Concomitant]
  7. METOPROLOL [Concomitant]
  8. DONEPEZIL [Suspect]
     Indication: DEMENTIA ALZHEIMER^S TYPE
     Dosage: DOSE: 1 TABLET X 1
     Route: 048
     Dates: start: 20130917, end: 20131009

REACTIONS (4)
  - Grand mal convulsion [Unknown]
  - Bradycardia [Unknown]
  - Ventricular tachycardia [Unknown]
  - Syncope [Recovering/Resolving]
